FAERS Safety Report 21227848 (Version 1)
Quarter: 2022Q3

REPORT INFORMATION
  Report Type: Spontaneous
  Country: PL (occurrence: PL)
  Receive Date: 20220818
  Receipt Date: 20220818
  Transmission Date: 20221027
  Serious: Yes (Other)
  Sender: FDA-Public Use
  Company Number: PL-AMNEAL PHARMACEUTICALS-2022-AMRX-02316

PATIENT
  Age: 43 Year
  Sex: Male

DRUGS (3)
  1. TRIAMCINOLONE ACETONIDE [Suspect]
     Active Substance: TRIAMCINOLONE ACETONIDE
     Indication: Macular oedema
     Dosage: 4 MG/0.1 ML
  2. ALYMSYS [Suspect]
     Active Substance: BEVACIZUMAB-MALY
     Indication: Macular oedema
     Dosage: 3 INJECTIONS OF BEVACIZUMAB (1.25MG/0.05ML)
  3. ALYMSYS [Suspect]
     Active Substance: BEVACIZUMAB-MALY
     Indication: Visual acuity tests

REACTIONS (3)
  - Central serous chorioretinopathy [Recovering/Resolving]
  - Serous retinal detachment [Recovered/Resolved]
  - Therapy non-responder [Unknown]
